FAERS Safety Report 9821392 (Version 1)
Quarter: 2014Q1

REPORT INFORMATION
  Report Type: Spontaneous
  Country: US (occurrence: None)
  Receive Date: 20140115
  Receipt Date: 20140115
  Transmission Date: 20141002
  Serious: Yes (Life-Threatening)
  Sender: FDA-Public Use
  Company Number: None

PATIENT
  Age: 34 Year
  Sex: Male

DRUGS (5)
  1. ABILIFY [Suspect]
  2. TRILEPTAL [Suspect]
  3. ZYPREXA [Concomitant]
  4. INVEGA SUSTENNA [Concomitant]
  5. VITAMIN B-12 [Concomitant]

REACTIONS (1)
  - Homicidal ideation [None]
